FAERS Safety Report 9838258 (Version 3)
Quarter: 2014Q1

REPORT INFORMATION
  Report Type: Spontaneous
  Country: JP (occurrence: JP)
  Receive Date: 20140123
  Receipt Date: 20140220
  Transmission Date: 20141002
  Serious: Yes (Death, Other)
  Sender: FDA-Public Use
  Company Number: JP-B.I. PHARMACEUTICALS,INC./RIDGEFIELD-2014-BI-02579NB

PATIENT
  Age: 85 Year
  Sex: Male
  Weight: 53 kg

DRUGS (21)
  1. PRAZAXA [Suspect]
     Indication: ATRIAL FIBRILLATION
     Dosage: 220 MG
     Route: 048
     Dates: start: 20140107, end: 20140115
  2. HANP [Suspect]
     Indication: CARDIAC FAILURE CONGESTIVE
     Dosage: 2400 NR
     Route: 042
     Dates: start: 20140108, end: 20140112
  3. MAINTATE [Suspect]
     Indication: ATRIAL FIBRILLATION
     Dosage: 2.5 MG
     Route: 048
     Dates: start: 20140108, end: 20140115
  4. LASIX [Suspect]
     Indication: CARDIAC FAILURE CONGESTIVE
     Dosage: 20 MG
     Route: 048
     Dates: start: 20140108, end: 20140115
  5. ADJUST A [Suspect]
     Indication: CONSTIPATION
     Dosage: 80 MG
     Route: 048
     Dates: start: 20140107, end: 20140114
  6. VERAPAMIL HYDROCHLORIDE [Concomitant]
     Indication: ATRIAL FIBRILLATION
     Dosage: 120 MG
     Route: 048
     Dates: start: 20140108, end: 20140115
  7. MICARDIS / TELMISARTAN [Concomitant]
     Indication: HYPERTENSION
     Dosage: 80 MG
     Route: 048
     Dates: end: 20140115
  8. SPIRONOLACTONE [Concomitant]
     Indication: CARDIAC FAILURE CONGESTIVE
     Dosage: 25 MG
     Route: 048
     Dates: start: 20140108, end: 20140115
  9. SLOW-K / POTASSIUM CHLORIDE [Concomitant]
     Indication: HYPOKALAEMIA
     Dosage: 1200 MG
     Route: 048
     Dates: start: 20140108, end: 20140115
  10. VASOLAN / VERAPAMIL HYDROCHLORIDE [Concomitant]
     Dosage: 80 MG
     Route: 065
     Dates: end: 20140108
  11. MUCOSTA / REBAMIPIDE [Concomitant]
     Dosage: 200 MG
     Route: 065
     Dates: end: 20140108
  12. ALDACTONE A / SPIRONOLACTONE [Concomitant]
     Indication: CARDIAC FAILURE CONGESTIVE
     Dosage: 25 MG
     Route: 065
     Dates: start: 20131227, end: 20140108
  13. ASPARA POTASSIUM / POTASSIUM L-ASPARTATE [Concomitant]
     Dosage: 300 MG
     Route: 065
     Dates: start: 20131122
  14. ASPARA POTASSIUM / POTASSIUM L-ASPARTATE [Concomitant]
     Dosage: 600 MG
     Route: 048
     Dates: start: 20131217
  15. ELIQUIS / APIXABAN [Concomitant]
     Indication: ATRIAL FIBRILLATION
     Dosage: 5 MG
     Route: 048
     Dates: start: 20131227, end: 20140107
  16. ARTIST / CARVEDILOL [Concomitant]
     Indication: ATRIAL FIBRILLATION
     Dosage: 5 MG
     Route: 048
     Dates: start: 20131227, end: 20140107
  17. LUPRAC / TORASEMIDE [Concomitant]
     Indication: CARDIAC FAILURE CONGESTIVE
     Dosage: 2 MG
     Route: 048
     Dates: start: 20131227, end: 20140107
  18. CARNACULIN / KALLIDINOGENASE [Concomitant]
     Dosage: 3 ANZ
     Dates: end: 20131226
  19. BAYASPIRIN / ASPIRIN [Concomitant]
     Dosage: 100 MG
     Dates: end: 20131226
  20. TAKEPRON / LANSOPRAZOLE [Concomitant]
     Dosage: 15 MG
     Dates: end: 20131226
  21. CALBLOCK / AZELNIDIPINE [Concomitant]
     Dosage: 4 MG
     Dates: end: 20131226

REACTIONS (4)
  - Hepatitis fulminant [Fatal]
  - Multi-organ failure [Fatal]
  - Renal failure [Unknown]
  - Anuria [Unknown]
